FAERS Safety Report 6119383-X (Version None)
Quarter: 2009Q1

REPORT INFORMATION
  Report Type: 
  Country: None (occurrence: None)
  Receive Date: 20090316
  Receipt Date: 20090306
  Transmission Date: 20090719
  Serious: Yes (Hospitalization)
  Sender: FDA-Public Use
  Company Number: A0683354A

PATIENT
  Age: 60 Year
  Sex: Male
  Weight: 144.1 kg

DRUGS (11)
  1. AVANDIA [Suspect]
     Dosage: 4MG TWICE PER DAY
     Route: 048
     Dates: start: 20050804, end: 20060329
  2. METFORMIN HCL [Concomitant]
  3. GLYBURIDE [Concomitant]
  4. UNKNOWN BLOOD PRESSURE MEDICATION [Concomitant]
  5. POTASSIUM CHLORIDE [Concomitant]
  6. FLOMAX [Concomitant]
  7. BUMETANIDE [Concomitant]
  8. PRAVACHOL [Concomitant]
  9. LESCOL XL [Concomitant]
     Route: 048
  10. COLCHICINE [Concomitant]
  11. COSOPT [Concomitant]
     Route: 047

REACTIONS (9)
  - ARTERIOSCLEROSIS [None]
  - ASTHENIA [None]
  - CARDIAC FAILURE CONGESTIVE [None]
  - CARDIOMYOPATHY [None]
  - COUGH [None]
  - DYSPNOEA [None]
  - EJECTION FRACTION DECREASED [None]
  - PULMONARY OEDEMA [None]
  - RENAL IMPAIRMENT [None]
